FAERS Safety Report 18169984 (Version 1)
Quarter: 2020Q3

REPORT INFORMATION
  Report Type: Spontaneous
  Country: NO (occurrence: NO)
  Receive Date: 20200819
  Receipt Date: 20200819
  Transmission Date: 20201103
  Serious: Yes (Other)
  Sender: FDA-Public Use
  Company Number: NO-SHIRE-NO202026404

PATIENT

DRUGS (4)
  1. LOCOID LIPID [Concomitant]
     Indication: PRODUCT USED FOR UNKNOWN INDICATION
     Dates: start: 2011
  2. ELVANSE [Suspect]
     Active Substance: LISDEXAMFETAMINE DIMESYLATE
     Indication: ATTENTION DEFICIT HYPERACTIVITY DISORDER
     Dates: start: 20190901, end: 20200619
  3. RITALIN [Concomitant]
     Active Substance: METHYLPHENIDATE HYDROCHLORIDE
     Indication: PRODUCT USED FOR UNKNOWN INDICATION
  4. INTUNIV [Concomitant]
     Active Substance: GUANFACINE HYDROCHLORIDE
     Route: 065
     Dates: start: 20200315, end: 20200515

REACTIONS (8)
  - Fatigue [Unknown]
  - Depression [Recovering/Resolving]
  - Intentional self-injury [Unknown]
  - Product substitution issue [Unknown]
  - Hallucination, visual [Recovering/Resolving]
  - Antisocial behaviour [Recovering/Resolving]
  - Decreased appetite [Recovered/Resolved]
  - Anxiety [Recovering/Resolving]

NARRATIVE: CASE EVENT DATE: 20191115
